FAERS Safety Report 10348004 (Version 2)
Quarter: 2019Q3

REPORT INFORMATION
  Report Type: Report from Study
  Country: US (occurrence: US)
  Receive Date: 20140729
  Receipt Date: 20190710
  Transmission Date: 20191004
  Serious: Yes (Other)
  Sender: FDA-Public Use
  Company Number: US-GILEAD-2014-0109679

PATIENT
  Age: 52 Year
  Sex: Female
  Weight: 77.11 kg

DRUGS (8)
  1. SOFOSBUVIR [Suspect]
     Active Substance: SOFOSBUVIR
     Indication: CHRONIC HEPATITIS C
     Dosage: 400 MG, UNK
     Route: 048
     Dates: start: 20140611, end: 2014
  2. OLYSIO [Suspect]
     Active Substance: SIMEPREVIR
     Indication: CHRONIC HEPATITIS C
     Dosage: 150 MG, QD
     Route: 048
     Dates: start: 20140611, end: 2014
  3. NATURAL TEARS [Concomitant]
     Active Substance: POLYVINYL ALCOHOL\POVIDONE
     Indication: DRY EYE
     Dates: start: 20140611
  4. OLYSIO [Suspect]
     Active Substance: SIMEPREVIR
     Route: 048
     Dates: start: 20140611
  5. RIBAVIRIN. [Suspect]
     Active Substance: RIBAVIRIN
     Indication: HEPATITIS C
     Dosage: 1200 MG, QD
     Route: 048
     Dates: start: 20140611, end: 201406
  6. NAUSEA MEDICATION [Concomitant]
     Active Substance: UNSPECIFIED INGREDIENT
     Indication: NAUSEA
  7. XANAX [Concomitant]
     Active Substance: ALPRAZOLAM
     Indication: ANXIETY
     Route: 048
  8. DIABETES MEDICATION [Concomitant]
     Active Substance: UNSPECIFIED INGREDIENT
     Indication: DIABETES MELLITUS

REACTIONS (40)
  - Vomiting [Recovered/Resolved]
  - Dry eye [Recovering/Resolving]
  - Nausea [Unknown]
  - Viral load increased [Not Recovered/Not Resolved]
  - Blood glucose increased [Unknown]
  - Thinking abnormal [Not Recovered/Not Resolved]
  - Ocular hyperaemia [Not Recovered/Not Resolved]
  - Eye swelling [Not Recovered/Not Resolved]
  - Fatigue [Not Recovered/Not Resolved]
  - Anxiety [Not Recovered/Not Resolved]
  - Fibromyalgia [Not Recovered/Not Resolved]
  - Dry mouth [Recovered/Resolved]
  - Adverse event [Recovered/Resolved]
  - Insomnia [Unknown]
  - Tongue ulceration [Recovered/Resolved]
  - Malaise [Unknown]
  - Emotional disorder [Not Recovered/Not Resolved]
  - Tongue discomfort [Recovered/Resolved]
  - Pruritus [Unknown]
  - Osteoarthritis [Not Recovered/Not Resolved]
  - Irritability [Not Recovered/Not Resolved]
  - Thirst [Recovering/Resolving]
  - Dry eye [Unknown]
  - Blood bilirubin increased [Not Recovered/Not Resolved]
  - Aptyalism [Recovered/Resolved]
  - Dry skin [Unknown]
  - Drug ineffective [Not Recovered/Not Resolved]
  - Off label use [Recovered/Resolved]
  - Depression [Not Recovered/Not Resolved]
  - Neuropathy peripheral [Recovering/Resolving]
  - Emotional disorder [Not Recovered/Not Resolved]
  - Decreased appetite [Unknown]
  - Asthenopia [Not Recovered/Not Resolved]
  - Abnormal sensation in eye [Not Recovered/Not Resolved]
  - Insomnia [Not Recovered/Not Resolved]
  - Personality change [Not Recovered/Not Resolved]
  - Alopecia [Not Recovered/Not Resolved]
  - Headache [Unknown]
  - Energy increased [Unknown]
  - Therapeutic response unexpected [Unknown]

NARRATIVE: CASE EVENT DATE: 2014
